FAERS Safety Report 19665586 (Version 3)
Quarter: 2025Q2

REPORT INFORMATION
  Report Type: Spontaneous
  Country: US (occurrence: US)
  Receive Date: 20210806
  Receipt Date: 20250403
  Transmission Date: 20250716
  Serious: No
  Sender: ACCORD
  Company Number: US-ACCORD-220477

PATIENT
  Age: 66 Year
  Sex: Female

DRUGS (24)
  1. CARBOPLATIN [Suspect]
     Active Substance: CARBOPLATIN
     Indication: Breast cancer
     Dosage: CYCLE 1
     Dates: start: 20170504, end: 20170504
  2. DOCETAXEL [Suspect]
     Active Substance: DOCETAXEL
     Indication: Breast cancer
     Dosage: CONCENTRATE, CYCLE 1
     Dates: start: 20170504, end: 20170504
  3. PERTUZUMAB [Suspect]
     Active Substance: PERTUZUMAB
     Indication: Breast cancer
     Dosage: CYCLE 1
     Dates: start: 20170504, end: 20170504
  4. TRASTUZUMAB [Suspect]
     Active Substance: TRASTUZUMAB
     Indication: Breast cancer
     Dosage: CYCLE 1
     Dates: start: 20170504, end: 20170504
  5. TRASTUZUMAB [Suspect]
     Active Substance: TRASTUZUMAB
     Indication: Breast cancer
     Dosage: CYCLE 2
     Dates: start: 20170525, end: 20170525
  6. TRASTUZUMAB [Suspect]
     Active Substance: TRASTUZUMAB
     Indication: Breast cancer
     Dosage: CYCLE 3
     Dates: start: 20170615, end: 20170615
  7. TRASTUZUMAB [Suspect]
     Active Substance: TRASTUZUMAB
     Indication: Breast cancer
     Dosage: CYCLE 4
     Dates: start: 20170706, end: 20170706
  8. TRASTUZUMAB [Suspect]
     Active Substance: TRASTUZUMAB
     Indication: Breast cancer
     Dosage: CYCLE 5
     Dates: start: 20170727, end: 20170727
  9. TRASTUZUMAB [Suspect]
     Active Substance: TRASTUZUMAB
     Indication: Breast cancer
     Dosage: CYCLE 6
     Dates: start: 20170817, end: 20170817
  10. CARBOPLATIN [Suspect]
     Active Substance: CARBOPLATIN
     Indication: Breast cancer
     Dosage: CYCLE 2
     Dates: start: 20170525, end: 20170525
  11. CARBOPLATIN [Suspect]
     Active Substance: CARBOPLATIN
     Indication: Breast cancer
     Dosage: CYCLE 3
     Dates: start: 20170615, end: 20170615
  12. CARBOPLATIN [Suspect]
     Active Substance: CARBOPLATIN
     Indication: Breast cancer
     Dosage: CYCLE 4
     Dates: start: 20170706, end: 20170706
  13. CARBOPLATIN [Suspect]
     Active Substance: CARBOPLATIN
     Indication: Breast cancer
     Dosage: CYCLE 5
     Dates: start: 20170727, end: 20170727
  14. CARBOPLATIN [Suspect]
     Active Substance: CARBOPLATIN
     Indication: Breast cancer
     Dosage: CYCLE 6
     Dates: start: 20170817, end: 20170817
  15. PERTUZUMAB [Suspect]
     Active Substance: PERTUZUMAB
     Indication: Breast cancer
     Dosage: CYCLE 2
     Dates: start: 20170525, end: 20170525
  16. PERTUZUMAB [Suspect]
     Active Substance: PERTUZUMAB
     Indication: Breast cancer
     Dosage: CYCLE 3
     Dates: start: 20170615, end: 20170615
  17. PERTUZUMAB [Suspect]
     Active Substance: PERTUZUMAB
     Indication: Breast cancer
     Dosage: CYCLE 4
     Dates: start: 20170706, end: 20170706
  18. PERTUZUMAB [Suspect]
     Active Substance: PERTUZUMAB
     Indication: Breast cancer
     Dosage: CYCLE 5
     Dates: start: 20170727, end: 20170727
  19. PERTUZUMAB [Suspect]
     Active Substance: PERTUZUMAB
     Indication: Breast cancer
     Dosage: CYCLE 6
     Dates: start: 20170817, end: 20170817
  20. DOCETAXEL [Suspect]
     Active Substance: DOCETAXEL
     Indication: Breast cancer
     Dosage: CONCENTRATE, CYCLE 2
     Dates: start: 20170525, end: 20170525
  21. DOCETAXEL [Suspect]
     Active Substance: DOCETAXEL
     Indication: Breast cancer
     Dosage: CONCENTRATE, CYCLE 3
     Dates: start: 20170615, end: 20170615
  22. DOCETAXEL [Suspect]
     Active Substance: DOCETAXEL
     Indication: Breast cancer
     Dosage: CONCENTRATE, CYCLE 4
     Dates: start: 20170706, end: 20170706
  23. DOCETAXEL [Suspect]
     Active Substance: DOCETAXEL
     Indication: Breast cancer
     Dosage: CONCENTRATE, CYCLE 5
     Dates: start: 20170727, end: 20170727
  24. DOCETAXEL [Suspect]
     Active Substance: DOCETAXEL
     Indication: Breast cancer
     Dosage: CONCENTRATE, CYCLE 6
     Dates: start: 20170817, end: 20170817

REACTIONS (4)
  - Dacryostenosis acquired [Not Recovered/Not Resolved]
  - Lacrimal structure injury [Not Recovered/Not Resolved]
  - Dry eye [Unknown]
  - Off label use [Unknown]

NARRATIVE: CASE EVENT DATE: 20170504
